FAERS Safety Report 15397753 (Version 1)
Quarter: 2018Q3

REPORT INFORMATION
  Report Type: Spontaneous
  Country: US (occurrence: US)
  Receive Date: 20180913
  Receipt Date: 20180913
  Transmission Date: 20181010
  Serious: Yes (Other)
  Sender: FDA-Public Use
  Company Number: None

PATIENT
  Age: 58 Year
  Sex: Female
  Weight: 83.7 kg

DRUGS (7)
  1. AMBIEN [Concomitant]
     Active Substance: ZOLPIDEM TARTRATE
  2. METFORMIN [Concomitant]
     Active Substance: METFORMIN HYDROCHLORIDE
  3. CYMBALTA [Suspect]
     Active Substance: DULOXETINE HYDROCHLORIDE
     Indication: ANXIETY
     Route: 048
     Dates: start: 20171207, end: 20180515
  4. CYMBALTA [Suspect]
     Active Substance: DULOXETINE HYDROCHLORIDE
     Indication: DEPRESSION
     Route: 048
     Dates: start: 20171207, end: 20180515
  5. CYMBALTA [Suspect]
     Active Substance: DULOXETINE HYDROCHLORIDE
     Indication: BACK PAIN
     Route: 048
     Dates: start: 20171207, end: 20180515
  6. IRBESARTAN. [Concomitant]
     Active Substance: IRBESARTAN
  7. MULTIVITAMIN [Concomitant]
     Active Substance: VITAMINS

REACTIONS (17)
  - Crying [None]
  - Drug withdrawal syndrome [None]
  - Dizziness [None]
  - Anger [None]
  - Selective mutism [None]
  - Pain [None]
  - Feeling abnormal [None]
  - Tremor [None]
  - Irritability [None]
  - Pain in extremity [None]
  - Paraesthesia [None]
  - Loss of consciousness [None]
  - Intentional dose omission [None]
  - Hypertension [None]
  - Therapy cessation [None]
  - Hyperhidrosis [None]
  - Headache [None]

NARRATIVE: CASE EVENT DATE: 20180517
